FAERS Safety Report 15842919 (Version 1)
Quarter: 2019Q1

REPORT INFORMATION
  Report Type: Spontaneous
  Country: DE (occurrence: DE)
  Receive Date: 20190118
  Receipt Date: 20190118
  Transmission Date: 20190417
  Serious: Yes (Other)
  Sender: FDA-Public Use
  Company Number: DE-PFIZER INC-2019019151

PATIENT
  Age: 25 Year
  Sex: Female

DRUGS (2)
  1. DEPO-CLINOVIR [Suspect]
     Active Substance: MEDROXYPROGESTERONE ACETATE
     Dosage: UNK
  2. TILIDINE HCL [Interacting]
     Active Substance: TILIDINE HYDROCHLORIDE
     Dosage: UNK

REACTIONS (2)
  - Haemorrhage [Unknown]
  - Drug interaction [Unknown]
